FAERS Safety Report 5252124-7 (Version None)
Quarter: 2007Q1

REPORT INFORMATION
  Report Type: 
  Country: None (occurrence: None)
  Receive Date: 20070226
  Receipt Date: 20070217
  Transmission Date: 20070707
  Serious: Yes (Death)
  Sender: FDA-Public Use
  Company Number: 163-21880-06110491

PATIENT
  Age: 67 Year
  Sex: Male
  Weight: 88.4514 kg

DRUGS (3)
  1. REVLIMID [Suspect]
     Indication: HAIRY CELL LEUKAEMIA
     Dosage: 5 MG, 1 IN 2 D, ORAL, 10 MG, 1 IN 1 D, ORAL
     Route: 048
     Dates: start: 20061019, end: 20061023
  2. REVLIMID [Suspect]
     Indication: HAIRY CELL LEUKAEMIA
     Dosage: 5 MG, 1 IN 2 D, ORAL, 10 MG, 1 IN 1 D, ORAL
     Route: 048
     Dates: start: 20061027, end: 20061116
  3. ZOCOR [Concomitant]

REACTIONS (3)
  - HAEMOGLOBIN DECREASED [None]
  - PRURITUS [None]
  - RED BLOOD CELL COUNT DECREASED [None]
